FAERS Safety Report 10198185 (Version 1)
Quarter: 2014Q2

REPORT INFORMATION
  Report Type: Spontaneous
  Country: US (occurrence: US)
  Receive Date: 20140527
  Receipt Date: 20140527
  Transmission Date: 20141212
  Serious: No
  Sender: FDA-Public Use
  Company Number: US-NOVEN-13US007541

PATIENT
  Age: 11 Year
  Sex: Male
  Weight: 68.03 kg

DRUGS (10)
  1. DAYTRANA [Suspect]
     Indication: ATTENTION DEFICIT/HYPERACTIVITY DISORDER
     Dosage: 20 MG, QD
     Route: 062
     Dates: start: 201302
  2. DAYTRANA [Suspect]
     Dosage: 20 MG, UNK
  3. DEPAKOTE [Concomitant]
     Indication: AUTISM
     Dosage: UNK
     Route: 048
  4. ZOLOFT [Concomitant]
     Indication: AUTISM
     Route: 048
  5. MINIPRESS [Concomitant]
     Indication: AUTISM
     Route: 048
  6. ABILIFY [Concomitant]
     Indication: AUTISM
     Route: 048
  7. SINGULAIR [Concomitant]
     Indication: HYPERSENSITIVITY
     Route: 048
  8. ZYRTEC [Concomitant]
     Indication: HYPERSENSITIVITY
     Route: 048
  9. BISACODYL [Concomitant]
  10. GOLYTELY [Concomitant]

REACTIONS (4)
  - Incorrect drug administration duration [Not Recovered/Not Resolved]
  - Wrong technique in drug usage process [Not Recovered/Not Resolved]
  - Product quality issue [Not Recovered/Not Resolved]
  - No adverse event [None]
